FAERS Safety Report 5216816-8 (Version None)
Quarter: 2007Q1

REPORT INFORMATION
  Report Type: 
  Country: None (occurrence: None)
  Receive Date: 20070119
  Receipt Date: 20070110
  Transmission Date: 20070707
  Serious: Yes (Other)
  Sender: FDA-Public Use
  Company Number: PHO-2006-051

PATIENT
  Age: 34 Year
  Sex: Female

DRUGS (1)
  1. PHOTOFRIN [Suspect]
     Indication: LUNG NEOPLASM MALIGNANT
     Dosage: 167MG IV
     Route: 042
     Dates: start: 20061212, end: 20061212

REACTIONS (2)
  - HYPOXIA [None]
  - POST PROCEDURAL COMPLICATION [None]
